FAERS Safety Report 5814864-8 (Version None)
Quarter: 2008Q3

REPORT INFORMATION
  Report Type: 
  Country: None (occurrence: None)
  Receive Date: 20080718
  Receipt Date: 20080715
  Transmission Date: 20090109
  Serious: Yes (Hospitalization)
  Sender: FDA-Public Use
  Company Number: DE-AVENTIS-200811913DE

PATIENT

DRUGS (2)
  1. ARAVA [Suspect]
     Route: 048
  2. MTX                                /00113801/ [Concomitant]
     Dosage: DOSE: NOT REPORTED

REACTIONS (3)
  - ALANINE AMINOTRANSFERASE INCREASED [None]
  - ASPARTATE AMINOTRANSFERASE INCREASED [None]
  - TRANSAMINASES INCREASED [None]
